FAERS Safety Report 9742436 (Version 1)
Quarter: 2013Q4

REPORT INFORMATION
  Report Type: Spontaneous
  Country: BR (occurrence: BR)
  Receive Date: 20131210
  Receipt Date: 20131210
  Transmission Date: 20140711
  Serious: No
  Sender: FDA-Public Use
  Company Number: BR-ELI_LILLY_AND_COMPANY-BR201311009705

PATIENT
  Age: 58 Year
  Sex: Male
  Weight: 87 kg

DRUGS (1)
  1. CIALIS [Suspect]
     Indication: PROSTATECTOMY
     Dosage: 5 MG, EACH EVENING
     Route: 048
     Dates: start: 20131113

REACTIONS (5)
  - Vision blurred [Not Recovered/Not Resolved]
  - Off label use [Unknown]
  - Insomnia [Not Recovered/Not Resolved]
  - Nasal congestion [Not Recovered/Not Resolved]
  - Headache [Not Recovered/Not Resolved]
